FAERS Safety Report 17275410 (Version 1)
Quarter: 2020Q1

REPORT INFORMATION
  Report Type: Report from Study
  Country: US (occurrence: US)
  Receive Date: 20200116
  Receipt Date: 20200116
  Transmission Date: 20200409
  Serious: Yes (Other)
  Sender: FDA-Public Use
  Company Number: US-BIOGEN-2020BI00826214

PATIENT
  Sex: Female

DRUGS (1)
  1. TECFIDERA [Suspect]
     Active Substance: DIMETHYL FUMARATE
     Indication: MULTIPLE SCLEROSIS
     Route: 065
     Dates: start: 20141114

REACTIONS (5)
  - Encephalitis [Unknown]
  - Meningitis [Unknown]
  - Migraine [Unknown]
  - Unintentional use for unapproved indication [Unknown]
  - Herpes virus infection [Unknown]
